FAERS Safety Report 5159894-7 (Version None)
Quarter: 2006Q4

REPORT INFORMATION
  Report Type: 
  Country: None (occurrence: None)
  Receive Date: 20061129
  Receipt Date: 20060417
  Transmission Date: 20070319
  Serious: No
  Sender: FDA-Public Use
  Company Number: US-GLAXOSMITHKLINE-A0601974A

PATIENT
  Age: 71 Year
  Sex: Male

DRUGS (3)
  1. WELLBUTRIN SR [Suspect]
     Indication: DEPRESSION
     Dosage: 300MG TWICE PER DAY
     Route: 048
  2. WELLBUTRIN XL [Suspect]
     Indication: DEPRESSION
     Route: 048
  3. DOXEPIN HCL [Concomitant]

REACTIONS (4)
  - EYE PAIN [None]
  - HEADACHE [None]
  - POLLAKIURIA [None]
  - RASH [None]
